FAERS Safety Report 6191034-8 (Version None)
Quarter: 2009Q2

REPORT INFORMATION
  Report Type: 
  Country: None (occurrence: None)
  Receive Date: 20090513
  Receipt Date: 20090430
  Transmission Date: 20091009
  Serious: Yes (Other)
  Sender: FDA-Public Use
  Company Number: 234189K09USA

PATIENT
  Age: 38 Year
  Sex: Female

DRUGS (4)
  1. REBIF [Suspect]
     Indication: MULTIPLE SCLEROSIS
     Dosage: 8.8 MCG, 22 MCG, 8.8 MCG, 22 MC, 3 IN 1 WEEKS, SUBCUTANEOUS
     Route: 058
     Dates: start: 20081023, end: 20080101
  2. REBIF [Suspect]
     Indication: MULTIPLE SCLEROSIS
     Dosage: 8.8 MCG, 22 MCG, 8.8 MCG, 22 MC, 3 IN 1 WEEKS, SUBCUTANEOUS
     Route: 058
     Dates: start: 20080101, end: 20081121
  3. REBIF [Suspect]
     Indication: MULTIPLE SCLEROSIS
     Dosage: 8.8 MCG, 22 MCG, 8.8 MCG, 22 MC, 3 IN 1 WEEKS, SUBCUTANEOUS
     Route: 058
     Dates: start: 20090301, end: 20090301
  4. REBIF [Suspect]
     Indication: MULTIPLE SCLEROSIS
     Dosage: 8.8 MCG, 22 MCG, 8.8 MCG, 22 MC, 3 IN 1 WEEKS, SUBCUTANEOUS
     Route: 058
     Dates: start: 20090302, end: 20090301

REACTIONS (3)
  - ARTHRITIS [None]
  - BLOOD IMMUNOGLOBULIN G DECREASED [None]
  - BREAST ABSCESS [None]
